FAERS Safety Report 25711814 (Version 1)
Quarter: 2025Q3

REPORT INFORMATION
  Report Type: Spontaneous
  Country: BR (occurrence: BR)
  Receive Date: 20250821
  Receipt Date: 20250821
  Transmission Date: 20251021
  Serious: Yes (Death, Other)
  Sender: SANOFI AVENTIS
  Company Number: BR-SA-2016SA130163

PATIENT
  Age: 15 Year
  Sex: Female

DRUGS (8)
  1. PREDNISONE [Suspect]
     Active Substance: PREDNISONE
     Indication: Systemic lupus erythematosus
     Dosage: 60 MG, QD
  2. PREDNISONE [Suspect]
     Active Substance: PREDNISONE
     Dosage: 15 MG, QD
  3. CHLOROQUINE [Suspect]
     Active Substance: CHLOROQUINE
     Indication: Systemic lupus erythematosus
     Dosage: 250 MG, QD
  4. RIFAMPIN [Suspect]
     Active Substance: RIFAMPIN
     Indication: Disseminated tuberculosis
  5. ISONIAZID [Suspect]
     Active Substance: ISONIAZID
     Indication: Disseminated tuberculosis
  6. PYRAZINAMIDE [Suspect]
     Active Substance: PYRAZINAMIDE
     Indication: Disseminated tuberculosis
  7. AZATHIOPRINE [Suspect]
     Active Substance: AZATHIOPRINE
     Indication: Systemic lupus erythematosus
     Dosage: 150 MG, QD
  8. AZATHIOPRINE [Suspect]
     Active Substance: AZATHIOPRINE
     Dosage: 100 MG, QD

REACTIONS (14)
  - Disseminated tuberculosis [Fatal]
  - Cough [Fatal]
  - Productive cough [Fatal]
  - Dyspnoea [Fatal]
  - Granuloma [Fatal]
  - Confusional state [Fatal]
  - Irritability [Fatal]
  - Pulmonary necrosis [Fatal]
  - Lung infiltration [Fatal]
  - Pleurisy [Fatal]
  - Hepatitis acute [Unknown]
  - Abdominal pain [Unknown]
  - Vomiting [Unknown]
  - Hepatotoxicity [Unknown]
